FAERS Safety Report 4906607-7 (Version None)
Quarter: 2006Q1

REPORT INFORMATION
  Report Type: 
  Country: None (occurrence: None)
  Receive Date: 20060209
  Receipt Date: 20050207
  Transmission Date: 20060701
  Serious: Yes (Hospitalization)
  Sender: FDA-Public Use
  Company Number: JP-GLAXOSMITHKLINE-B0370664A

PATIENT
  Age: 72 Year
  Sex: Male

DRUGS (3)
  1. VALTREX [Suspect]
     Indication: HERPES ZOSTER
     Dosage: 1000MG THREE TIMES PER DAY
     Route: 048
     Dates: start: 20050101, end: 20050106
  2. MIOCAMYCIN [Suspect]
     Indication: BRONCHITIS
     Dosage: 200MG THREE TIMES PER DAY
     Route: 048
     Dates: start: 20050101, end: 20050106
  3. NOLEPTAN [Suspect]
     Indication: BRONCHITIS
     Dosage: 80MG THREE TIMES PER DAY
     Route: 048
     Dates: start: 20050101, end: 20050106

REACTIONS (8)
  - BLOOD CREATININE INCREASED [None]
  - BLOOD UREA INCREASED [None]
  - CEREBRAL INFARCTION [None]
  - CONDITION AGGRAVATED [None]
  - DYSLALIA [None]
  - ENCEPHALOPATHY [None]
  - PARESIS [None]
  - RENAL FAILURE ACUTE [None]
